FAERS Safety Report 4403810-X (Version None)
Quarter: 2004Q3

REPORT INFORMATION
  Report Type: 
  Country: None (occurrence: None)
  Receive Date: 20040719
  Receipt Date: 20040709
  Transmission Date: 20050211
  Serious: Yes (Hospitalization)
  Sender: FDA-Public Use
  Company Number: KII-2004-0012072

PATIENT
  Age: 18 Month
  Sex: Female

DRUGS (1)
  1. MORPHINE SULFATE [Suspect]

REACTIONS (7)
  - ACCIDENTAL EXPOSURE [None]
  - AGITATION [None]
  - HEART RATE INCREASED [None]
  - MEDICATION ERROR [None]
  - MENTAL STATUS CHANGES [None]
  - OPIATES POSITIVE [None]
  - VOMITING [None]
